FAERS Safety Report 5715350-6 (Version None)
Quarter: 2008Q2

REPORT INFORMATION
  Report Type: 
  Country: None (occurrence: None)
  Receive Date: 20080423
  Receipt Date: 20080411
  Transmission Date: 20081010
  Serious: Yes (Other)
  Sender: FDA-Public Use
  Company Number: US-PFIZER INC-2008032236

PATIENT
  Sex: Male
  Weight: 97.727 kg

DRUGS (6)
  1. VIAGRA [Suspect]
     Indication: ERECTILE DYSFUNCTION
  2. ANTIBIOTICS [Interacting]
     Indication: HERNIA REPAIR
  3. ANTIBIOTICS [Interacting]
     Indication: LIMB OPERATION
  4. IBUPROFEN [Concomitant]
  5. CLARITIN [Concomitant]
  6. ACETAMINOPHEN, ASPIRIN AND CAFFEINE [Concomitant]

REACTIONS (5)
  - BRONCHITIS [None]
  - DRUG INEFFECTIVE [None]
  - DRUG INTERACTION [None]
  - HERNIA REPAIR [None]
  - LIMB OPERATION [None]
